FAERS Safety Report 4648888-3 (Version None)
Quarter: 2005Q2

REPORT INFORMATION
  Report Type: 
  Country: None (occurrence: None)
  Receive Date: 20050429
  Receipt Date: 20041013
  Transmission Date: 20051028
  Serious: No
  Sender: FDA-Public Use
  Company Number: US-GLAXOSMITHKLINE-A0529711A

PATIENT
  Age: 64 Year
  Sex: Male

DRUGS (4)
  1. AGENERASE [Suspect]
     Indication: HIV INFECTION
     Dosage: 6CAP TWICE PER DAY
     Route: 048
  2. ZIAGEN [Concomitant]
  3. VIRAMUNE [Concomitant]
  4. LESCOL [Concomitant]

REACTIONS (5)
  - ALOPECIA [None]
  - HYPOAESTHESIA [None]
  - PARAESTHESIA [None]
  - POLLAKIURIA [None]
  - PRURITUS [None]
